FAERS Safety Report 11239189 (Version 1)
Quarter: 2015Q3

REPORT INFORMATION
  Report Type: Spontaneous
  Country: US (occurrence: US)
  Receive Date: 20150706
  Receipt Date: 20150706
  Transmission Date: 20151125
  Serious: Yes (Other)
  Sender: FDA-Public Use
  Company Number: US-SA-2015SA059756

PATIENT
  Age: 53 Year
  Sex: Female

DRUGS (3)
  1. ENALAPRIL [Concomitant]
     Active Substance: ENALAPRIL
     Indication: HYPERTENSION
     Dates: start: 2011
  2. ICY HOT MEDICATED, ADVANCED RELIEF [Suspect]
     Active Substance: MENTHOL
     Indication: BACK PAIN
     Dosage: 20-21ST APRIL
     Route: 065
     Dates: start: 20150420, end: 20150422
  3. ICY HOT MEDICATED, ADVANCED RELIEF [Suspect]
     Active Substance: MENTHOL
     Indication: LIGAMENT SPRAIN
     Dosage: 20-21ST APRIL
     Route: 065
     Dates: start: 20150420, end: 20150422

REACTIONS (6)
  - Pruritus [Recovering/Resolving]
  - Skin sensitisation [Recovering/Resolving]
  - Erythema [Recovering/Resolving]
  - Burns second degree [Recovering/Resolving]
  - Skin exfoliation [Recovered/Resolved]
  - Back pain [Unknown]

NARRATIVE: CASE EVENT DATE: 2015
